FAERS Safety Report 15552127 (Version 1)
Quarter: 2018Q4

REPORT INFORMATION
  Report Type: Spontaneous
  Country: US (occurrence: US)
  Receive Date: 20181022
  Receipt Date: 20181022
  Transmission Date: 20190205
  Serious: No
  Sender: FDA-Public Use
  Company Number: None

PATIENT
  Age: 57 Year
  Sex: Male

DRUGS (1)
  1. LEUKINE [Suspect]
     Active Substance: SARGRAMOSTIM
     Dates: start: 20181008

REACTIONS (3)
  - Drug effect incomplete [None]
  - Rash [None]
  - Injection site rash [None]

NARRATIVE: CASE EVENT DATE: 20181010
